FAERS Safety Report 21931660 (Version 5)
Quarter: 2025Q3

REPORT INFORMATION
  Report Type: Spontaneous
  Country: US (occurrence: US)
  Receive Date: 20230131
  Receipt Date: 20250710
  Transmission Date: 20251020
  Serious: Yes (Other)
  Sender: PFIZER
  Company Number: US-PFIZER INC-PV202300018068

PATIENT
  Age: 68 Year
  Sex: Female
  Weight: 71.67 kg

DRUGS (1)
  1. PREMARIN [Suspect]
     Active Substance: ESTROGENS, CONJUGATED
     Indication: Menopause
     Dosage: 0.625 MG 1 TABLET PER DAY
     Dates: start: 1992

REACTIONS (1)
  - Intestinal obstruction [Unknown]
